FAERS Safety Report 19453529 (Version 1)
Quarter: 2021Q2

REPORT INFORMATION
  Report Type: Spontaneous
  Country: US (occurrence: US)
  Receive Date: 20210623
  Receipt Date: 20210623
  Transmission Date: 20210717
  Serious: Yes (Death)
  Sender: FDA-Public Use
  Company Number: US-PFIZER INC-2021740431

PATIENT
  Age: 39 Year
  Sex: Female

DRUGS (1)
  1. MEKTOVI [Suspect]
     Active Substance: BINIMETINIB
     Indication: NEOPLASM MALIGNANT
     Dosage: 15 MG

REACTIONS (1)
  - Death [Fatal]
